FAERS Safety Report 9255723 (Version 2)
Quarter: 2013Q3

REPORT INFORMATION
  Report Type: Spontaneous
  Country: US (occurrence: US)
  Receive Date: 20130425
  Receipt Date: 20130814
  Transmission Date: 20140515
  Serious: Yes (Hospitalization, Other)
  Sender: FDA-Public Use
  Company Number: US-009507513-1304USA013902

PATIENT
  Sex: Female
  Weight: 81.63 kg

DRUGS (1)
  1. NUVARING [Suspect]
     Indication: CONTRACEPTION
     Dosage: 1 DF, UNK
     Route: 067
     Dates: start: 201103, end: 201104

REACTIONS (6)
  - Arthralgia [Unknown]
  - Pulmonary embolism [Recovering/Resolving]
  - Nasal congestion [Unknown]
  - Venous thrombosis limb [Unknown]
  - Asthma [Unknown]
  - Maternal exposure before pregnancy [Recovered/Resolved]
